FAERS Safety Report 8061869-5 (Version None)
Quarter: 2012Q1

REPORT INFORMATION
  Report Type: 
  Country: None (occurrence: None)
  Receive Date: 20120117
  Receipt Date: 20120110
  Transmission Date: 20120608
  Serious: Yes (Death)
  Sender: FDA-Public Use
  Company Number: 1000026994

PATIENT
  Age: 52 Year
  Sex: Female

DRUGS (9)
  1. CYCLOBENZAPRINE [Suspect]
  2. AMPHETAMINE SULFATE [Suspect]
  3. ETHANOL (ETHANOL) [Suspect]
  4. AMITRIPTYLINE HCL [Suspect]
  5. METOCLOPRAMIDE [Suspect]
  6. MORPHINE [Suspect]
  7. PROPRANOLOL HYDROCHLORIDE [Suspect]
  8. GABAPENTIN [Suspect]
  9. GEMFIBROZIL [Suspect]

REACTIONS (1)
  - COMPLETED SUICIDE [None]
